FAERS Safety Report 12494209 (Version 1)
Quarter: 2016Q2

REPORT INFORMATION
  Report Type: Report from Study
  Country: IT (occurrence: IT)
  Receive Date: 20160623
  Receipt Date: 20160623
  Transmission Date: 20160815
  Serious: Yes (Other)
  Sender: FDA-Public Use
  Company Number: IT-ABBVIE-16P-083-1656877-00

PATIENT
  Age: 74 Year
  Sex: Female
  Weight: 57 kg

DRUGS (1)
  1. DUODOPA [Suspect]
     Active Substance: CARBIDOPA\LEVODOPA
     Indication: PARKINSON^S DISEASE
     Dosage: MD 4(+3)?CR 2,7?ED 1
     Route: 050
     Dates: start: 20101110

REACTIONS (4)
  - Fistula [Unknown]
  - Gastric ulcer [Unknown]
  - Gastrointestinal disorder [Unknown]
  - Bezoar [Unknown]

NARRATIVE: CASE EVENT DATE: 201603
